FAERS Safety Report 7219564-8 (Version None)
Quarter: 2011Q1

REPORT INFORMATION
  Report Type: 
  Country: None (occurrence: None)
  Receive Date: 20110111
  Receipt Date: 20110105
  Transmission Date: 20110831
  Serious: Yes (Other)
  Sender: FDA-Public Use
  Company Number: US-JNJFOC-20110101084

PATIENT
  Sex: Female
  Weight: 46.27 kg

DRUGS (2)
  1. REMICADE [Suspect]
     Indication: RHEUMATOID ARTHRITIS
     Route: 042
  2. AMBIEN [Concomitant]
     Indication: SLEEP DISORDER
     Dosage: AT BEDTIME

REACTIONS (8)
  - SINUS DISORDER [None]
  - DIARRHOEA [None]
  - RHINORRHOEA [None]
  - ALOPECIA [None]
  - ORAL NEOPLASM [None]
  - THYROID DISORDER [None]
  - WEIGHT DECREASED [None]
  - HYPERTENSION [None]
